FAERS Safety Report 7680068-X (Version None)
Quarter: 2011Q3

REPORT INFORMATION
  Report Type: 
  Country: None (occurrence: None)
  Receive Date: 20110812
  Receipt Date: 20110804
  Transmission Date: 20111222
  Serious: Yes (Hospitalization)
  Sender: FDA-Public Use
  Company Number: US-ROCHE-748981

PATIENT
  Sex: Female

DRUGS (3)
  1. HERCEPTIN [Suspect]
     Indication: BREAST CANCER
     Route: 042
     Dates: start: 20100203, end: 20101020
  2. LAPATINIB [Suspect]
     Indication: BREAST CANCER
     Route: 048
     Dates: start: 20100203, end: 20100907
  3. PACLITAXEL [Suspect]
     Indication: BREAST CANCER
     Route: 042
     Dates: start: 20100203, end: 20100421

REACTIONS (5)
  - PULMONARY EMBOLISM [None]
  - PNEUMONIA [None]
  - PLEURAL EFFUSION [None]
  - RENAL FAILURE [None]
  - ATRIAL FIBRILLATION [None]
